FAERS Safety Report 6971249-9 (Version None)
Quarter: 2010Q3

REPORT INFORMATION
  Report Type: 
  Country: None (occurrence: None)
  Receive Date: 20100908
  Receipt Date: 20100902
  Transmission Date: 20110219
  Serious: Yes (Other)
  Sender: FDA-Public Use
  Company Number: JP-BRISTOL-MYERS SQUIBB COMPANY-15227135

PATIENT
  Age: 69 Year
  Sex: Male

DRUGS (1)
  1. KENACORT [Suspect]
     Indication: SCLERITIS
     Dosage: 1 DF: 2.4MG-8MG IN TOTAL
     Route: 057

REACTIONS (1)
  - SCLERAL THINNING [None]
